FAERS Safety Report 25171217 (Version 1)
Quarter: 2025Q2

REPORT INFORMATION
  Report Type: Spontaneous
  Country: FR (occurrence: FR)
  Receive Date: 20250408
  Receipt Date: 20250408
  Transmission Date: 20250717
  Serious: Yes (Hospitalization, Other)
  Sender: AUROBINDO
  Company Number: FR-AFSSAPS-NC2025000354

PATIENT
  Age: 37 Year
  Sex: Male
  Weight: 112 kg

DRUGS (2)
  1. ACETAMINOPHEN [Suspect]
     Active Substance: ACETAMINOPHEN
     Indication: Migraine
     Dosage: 3 GRAM, ONCE A DAY
     Route: 048
     Dates: start: 20250223, end: 20250225
  2. IBUPROFEN [Suspect]
     Active Substance: IBUPROFEN
     Indication: Migraine
     Route: 048
     Dates: start: 20250223, end: 20250225

REACTIONS (2)
  - Acute kidney injury [Recovering/Resolving]
  - Hepatitis acute [Recovered/Resolved]

NARRATIVE: CASE EVENT DATE: 20250225
